FAERS Safety Report 8169177-9 (Version None)
Quarter: 2012Q1

REPORT INFORMATION
  Report Type: 
  Country: None (occurrence: None)
  Receive Date: 20120227
  Receipt Date: 20120222
  Transmission Date: 20120608
  Serious: Yes (Life-Threatening, Other)
  Sender: FDA-Public Use
  Company Number: US-ASTRAZENECA-2010SE09816

PATIENT
  Age: 48 Year
  Sex: Female
  Weight: 88 kg

DRUGS (14)
  1. SEROQUEL [Suspect]
     Indication: BIPOLAR II DISORDER
     Route: 048
     Dates: start: 20080101
  2. SEROQUEL [Suspect]
     Route: 048
  3. SEROQUEL [Suspect]
     Route: 048
  4. AMBIEN [Concomitant]
  5. SEROQUEL [Suspect]
     Route: 048
  6. SEROQUEL [Suspect]
     Route: 048
  7. SEROQUEL [Suspect]
     Indication: SLEEP DISORDER
     Route: 048
     Dates: start: 20080101
  8. SEROQUEL [Suspect]
     Route: 048
  9. SEROQUEL [Suspect]
     Route: 048
  10. XANAX [Concomitant]
  11. SEROQUEL [Suspect]
     Route: 048
  12. SYNTHROID [Concomitant]
  13. XANAX [Concomitant]
  14. SEROQUEL [Suspect]
     Route: 048

REACTIONS (22)
  - SUICIDAL IDEATION [None]
  - MENTAL DISORDER [None]
  - FEELING OF DESPAIR [None]
  - INAPPROPRIATE AFFECT [None]
  - ANXIETY [None]
  - SOCIAL PROBLEM [None]
  - SLEEP DISORDER [None]
  - MANIA [None]
  - AGITATION [None]
  - INCORRECT DOSE ADMINISTERED [None]
  - MOOD SWINGS [None]
  - MORBID THOUGHTS [None]
  - PSYCHIATRIC SYMPTOM [None]
  - WEIGHT INCREASED [None]
  - OFF LABEL USE [None]
  - OVERDOSE [None]
  - DEPRESSED MOOD [None]
  - MALAISE [None]
  - ANTISOCIAL BEHAVIOUR [None]
  - ANGER [None]
  - DEPRESSION [None]
  - SOMNOLENCE [None]
